FAERS Safety Report 23088484 (Version 2)
Quarter: 2024Q2

REPORT INFORMATION
  Report Type: Spontaneous
  Country: AU (occurrence: None)
  Receive Date: 20231020
  Receipt Date: 20240522
  Transmission Date: 20240716
  Serious: Yes (Hospitalization, Other)
  Sender: FDA-Public Use
  Company Number: 2023A233430

PATIENT
  Age: 54 Year
  Sex: Female

DRUGS (6)
  1. DAPAGLIFLOZIN [Suspect]
     Active Substance: DAPAGLIFLOZIN
     Route: 048
     Dates: start: 20230607
  2. LITHIUM CARBONATE [Suspect]
     Active Substance: LITHIUM CARBONATE
     Dates: start: 20230607, end: 20230622
  3. TRIMETHOPRIM [Suspect]
     Active Substance: TRIMETHOPRIM
     Dates: start: 20230620, end: 20230621
  4. ACETYLSALICYLIC ACID/CLOPIDOGREL/ROSUVASTATIN [Concomitant]
  5. DROPERIDOL [Concomitant]
     Active Substance: DROPERIDOL
  6. OLANZAPINE [Concomitant]
     Active Substance: OLANZAPINE

REACTIONS (9)
  - Acute kidney injury [Not Recovered/Not Resolved]
  - Toxicity to various agents [Not Recovered/Not Resolved]
  - Electrocardiogram QT prolonged [Not Recovered/Not Resolved]
  - Condition aggravated [Not Recovered/Not Resolved]
  - Dehydration [Not Recovered/Not Resolved]
  - Faecaloma [Not Recovered/Not Resolved]
  - Hypophagia [Not Recovered/Not Resolved]
  - Urinary retention [Not Recovered/Not Resolved]
  - Urinary tract infection [Not Recovered/Not Resolved]

NARRATIVE: CASE EVENT DATE: 20231011
